FAERS Safety Report 17936123 (Version 1)
Quarter: 2020Q2

REPORT INFORMATION
  Report Type: Spontaneous
  Country: US (occurrence: US)
  Receive Date: 20200624
  Receipt Date: 20200624
  Transmission Date: 20200714
  Serious: Yes (Hospitalization, Other)
  Sender: FDA-Public Use
  Company Number: US-HIKMA PHARMACEUTICALS USA INC.-US-H14001-20-02985

PATIENT
  Age: 38 Year
  Sex: Male

DRUGS (4)
  1. BENZTROPINE. [Concomitant]
     Active Substance: BENZTROPINE
     Indication: MANIA
     Route: 065
  2. LITHIUM CARBONATE. [Suspect]
     Active Substance: LITHIUM CARBONATE
     Route: 065
  3. HALOPERIDOL. [Concomitant]
     Active Substance: HALOPERIDOL
     Indication: MANIA
     Route: 065
  4. LITHIUM CARBONATE. [Suspect]
     Active Substance: LITHIUM CARBONATE
     Indication: BIPOLAR DISORDER
     Route: 065

REACTIONS (4)
  - Myocarditis [Recovered/Resolved]
  - Treatment noncompliance [Unknown]
  - Mania [Recovered/Resolved]
  - Overdose [Recovered/Resolved]
